FAERS Safety Report 12187694 (Version 1)
Quarter: 2016Q1

REPORT INFORMATION
  Report Type: Spontaneous
  Country: US (occurrence: US)
  Receive Date: 20160317
  Receipt Date: 20160317
  Transmission Date: 20160526
  Serious: No
  Sender: FDA-Public Use
  Company Number: US-PERRIGO-15US007888

PATIENT
  Age: 71 Year
  Sex: Female
  Weight: 66.21 kg

DRUGS (3)
  1. NICOTINE POLACRILEX [Suspect]
     Active Substance: NICOTINE
     Indication: SMOKING CESSATION THERAPY
     Dosage: 2 MG, EVERY 15 TO 20 MINUTES, MORE THAN 20 TIMES DAILY
     Route: 002
     Dates: start: 2013, end: 201507
  2. NICOTINE POLACRILEX [Suspect]
     Active Substance: NICOTINE
     Dosage: 2 MG, EVERY 15 TO 20 MINUTES, MORE THAN 20 TIMES DAILY
     Route: 002
     Dates: start: 201507, end: 20150726
  3. NICOTINE POLACRILEX [Suspect]
     Active Substance: NICOTINE
     Dosage: 2 MG, QD TO BID
     Route: 002
     Dates: start: 20150727

REACTIONS (2)
  - Overdose [Recovered/Resolved]
  - Pruritus generalised [Unknown]

NARRATIVE: CASE EVENT DATE: 2013
